FAERS Safety Report 17388665 (Version 6)
Quarter: 2020Q2

REPORT INFORMATION
  Report Type: Spontaneous
  Country: US (occurrence: US)
  Receive Date: 20200207
  Receipt Date: 20200505
  Transmission Date: 20200713
  Serious: Yes (Other)
  Sender: FDA-Public Use
  Company Number: US-PFIZER INC-2020056499

PATIENT
  Age: 58 Year
  Sex: Female
  Weight: 135.1 kg

DRUGS (1)
  1. CHANTIX [Suspect]
     Active Substance: VARENICLINE TARTRATE
     Indication: SMOKING CESSATION THERAPY
     Dosage: 1 MG, (1 TO 2 TIMES DAILY WITH FOOD)
     Route: 048
     Dates: end: 201911

REACTIONS (6)
  - Diabetes mellitus [Not Recovered/Not Resolved]
  - Feeling abnormal [Not Recovered/Not Resolved]
  - Product dispensing error [Unknown]
  - Hyperphagia [Not Recovered/Not Resolved]
  - Memory impairment [Not Recovered/Not Resolved]
  - Weight increased [Not Recovered/Not Resolved]
